FAERS Safety Report 15689881 (Version 6)
Quarter: 2021Q2

REPORT INFORMATION
  Report Type: Report from Study
  Country: GB (occurrence: GB)
  Receive Date: 20181205
  Receipt Date: 20210618
  Transmission Date: 20210716
  Serious: Yes (Hospitalization, Other)
  Sender: FDA-Public Use
  Company Number: GB-ASPEN-GLO2015GB016656

PATIENT

DRUGS (22)
  1. DEXAMETHASONE. [Suspect]
     Active Substance: DEXAMETHASONE
     Dosage: 40 MG, 1 DOSE WEEKLY
     Route: 048
     Dates: start: 20150715
  2. POMALIDOMIDE [Suspect]
     Active Substance: POMALIDOMIDE
     Dosage: 4 MG, 24 DOSE 28 DAYS
     Route: 048
     Dates: start: 20150630
  3. CODEINE [Concomitant]
     Active Substance: CODEINE
     Dosage: 30 MG
     Route: 048
     Dates: start: 201504, end: 20150706
  4. SODIUM CLODRONATE [Concomitant]
     Active Substance: CLODRONIC ACID
     Indication: PLASMA CELL MYELOMA
     Dosage: 1040 MG, QD
     Route: 065
     Dates: start: 200808, end: 20150728
  5. DEXAMETHASONE. [Suspect]
     Active Substance: DEXAMETHASONE
     Indication: PLASMA CELL MYELOMA
     Dosage: UNK
     Route: 048
     Dates: start: 20080811, end: 200811
  6. DEXAMETHASONE. [Suspect]
     Active Substance: DEXAMETHASONE
     Dosage: 40 MG, 1 DOSE WEEKLY
     Route: 048
     Dates: start: 20150701, end: 20150722
  7. POMALIDOMIDE [Suspect]
     Active Substance: POMALIDOMIDE
     Dosage: 84 MG, 1 DOSE 28 DAYS (4 MG)
     Route: 048
     Dates: start: 20150721, end: 20150721
  8. ORAMORPH [Concomitant]
     Active Substance: MORPHINE SULFATE
     Indication: PAIN
     Dosage: 2.5 ML
     Route: 065
     Dates: start: 20150706, end: 20150828
  9. OMEPRAZOLE. [Concomitant]
     Active Substance: OMEPRAZOLE
     Indication: PRODUCT USED FOR UNKNOWN INDICATION
     Dosage: 20 MG, 1 DOSE WEEKLY
     Route: 065
     Dates: start: 20150630
  10. DEXAMETHASONE. [Suspect]
     Active Substance: DEXAMETHASONE
     Dosage: 40 MG, 1 DOSE WEEKLY
     Route: 048
     Dates: start: 20150722
  11. POMALIDOMIDE [Suspect]
     Active Substance: POMALIDOMIDE
     Dosage: 4 MG, 24 DOSE 28 DAYS
     Route: 048
     Dates: start: 20180701, end: 20180721
  12. PARACETAMOL [Concomitant]
     Active Substance: ACETAMINOPHEN
     Dosage: 1 G, QD
     Route: 048
     Dates: start: 201504, end: 20150706
  13. CODEINE [Concomitant]
     Active Substance: CODEINE
     Indication: PAIN
     Dosage: 30 MG
     Route: 048
     Dates: start: 201504, end: 20150706
  14. DEXAMETHASONE. [Suspect]
     Active Substance: DEXAMETHASONE
     Dosage: 40 MG, 1 DOSE WEEKLY
     Route: 048
     Dates: start: 20150630
  15. ASPIRIN. [Concomitant]
     Active Substance: ASPIRIN
     Indication: THROMBOSIS PROPHYLAXIS
     Dosage: 75 MG, QD
     Route: 048
     Dates: start: 20150120, end: 201506
  16. DEXAMETHASONE. [Suspect]
     Active Substance: DEXAMETHASONE
     Dosage: UNK
     Route: 048
     Dates: start: 20110308, end: 20110520
  17. DEXAMETHASONE. [Suspect]
     Active Substance: DEXAMETHASONE
     Dosage: 40 MG, 1 DOSE WEEKLY
     Route: 048
     Dates: start: 20150708
  18. POMALIDOMIDE [Suspect]
     Active Substance: POMALIDOMIDE
     Indication: PLASMA CELL MYELOMA
     Dosage: 84 MG, 1 DOSE 28 DAYS
     Route: 048
     Dates: start: 20150630
  19. AMLODIPINE [Concomitant]
     Active Substance: AMLODIPINE BESYLATE
     Indication: HYPERTENSION
     Dosage: 5 MG, QD
     Route: 048
     Dates: start: 2010, end: 20150622
  20. POMALIDOMIDE [Suspect]
     Active Substance: POMALIDOMIDE
     Dosage: UNK
     Route: 065
  21. PARACETAMOL [Concomitant]
     Active Substance: ACETAMINOPHEN
     Indication: PAIN
     Dosage: 1 G, QD (3 GRAM)
     Route: 048
     Dates: start: 201504, end: 20150706
  22. ENOXAPARIN [Concomitant]
     Active Substance: ENOXAPARIN
     Indication: THROMBOSIS PROPHYLAXIS
     Dosage: 40 MG
     Route: 048
     Dates: start: 20150630

REACTIONS (6)
  - Hepatic enzyme increased [Recovered/Resolved]
  - Arthritis reactive [Recovered/Resolved]
  - Arthralgia [Recovered/Resolved]
  - Blood alkaline phosphatase increased [Recovering/Resolving]
  - Oedema peripheral [Not Recovered/Not Resolved]
  - Anaemia [Recovering/Resolving]

NARRATIVE: CASE EVENT DATE: 20150706
